FAERS Safety Report 6614110-1 (Version None)
Quarter: 2010Q1

REPORT INFORMATION
  Report Type: 
  Country: None (occurrence: None)
  Receive Date: 20100304
  Receipt Date: 20100228
  Transmission Date: 20100710
  Serious: Yes (Life-Threatening)
  Sender: FDA-Public Use
  Company Number: IT-TEVA-222612ISR

PATIENT
  Sex: Female

DRUGS (10)
  1. VINCRISTINE [Suspect]
     Indication: ACUTE LYMPHOCYTIC LEUKAEMIA
     Route: 042
     Dates: start: 20090510, end: 20090512
  2. CYCLOPHOSPHAMIDE [Suspect]
     Indication: ACUTE LYMPHOCYTIC LEUKAEMIA
     Route: 042
     Dates: start: 20090508, end: 20090510
  3. IDARUBICIN HYDROCHLORIDE [Suspect]
     Indication: ACUTE LYMPHOCYTIC LEUKAEMIA
     Route: 042
     Dates: start: 20090512, end: 20090513
  4. METHYLPREDNISOLONE SODIUM SUCCINATE [Suspect]
     Indication: ACUTE LYMPHOCYTIC LEUKAEMIA
     Route: 042
     Dates: start: 20090506, end: 20090510
  5. METHYLPREDNISOLONE SODIUM SUCCINATE [Suspect]
     Route: 037
     Dates: start: 20090513, end: 20090513
  6. DEXAMETHASONE 4MG TAB [Suspect]
     Indication: ACUTE LYMPHOCYTIC LEUKAEMIA
     Route: 042
     Dates: start: 20090512, end: 20090530
  7. ASPARAGINASE [Suspect]
     Indication: ACUTE LYMPHOCYTIC LEUKAEMIA
     Route: 042
     Dates: start: 20090519, end: 20090521
  8. METHOTREXATE [Concomitant]
     Indication: ACUTE LYMPHOCYTIC LEUKAEMIA
     Route: 037
     Dates: start: 20090513, end: 20090513
  9. CYTARABINE [Concomitant]
     Indication: ACUTE LYMPHOCYTIC LEUKAEMIA
     Route: 037
     Dates: start: 20090513, end: 20090513
  10. LEUPRORELIN [Concomitant]
     Indication: ACUTE LYMPHOCYTIC LEUKAEMIA
     Route: 058
     Dates: start: 20090515, end: 20090515

REACTIONS (6)
  - ANAEMIA [None]
  - COLITIS ULCERATIVE [None]
  - GASTROINTESTINAL INFLAMMATION [None]
  - HEPATOTOXICITY [None]
  - INTESTINAL HAEMORRHAGE [None]
  - PULMONARY MYCOSIS [None]
